FAERS Safety Report 10647830 (Version 1)
Quarter: 2014Q4

REPORT INFORMATION
  Report Type: Report from Study
  Country: CA (occurrence: CA)
  Receive Date: 20141212
  Receipt Date: 20141212
  Transmission Date: 20150529
  Serious: Yes (Hospitalization)
  Sender: FDA-Public Use
  Company Number: CA-ROCHE-1502960

PATIENT
  Sex: Female

DRUGS (17)
  1. DILAUDID [Concomitant]
     Active Substance: HYDROMORPHONE HYDROCHLORIDE
  2. PREDNISONE. [Concomitant]
     Active Substance: PREDNISONE
  3. DAPSONE. [Concomitant]
     Active Substance: DAPSONE
  4. DIPHENHYDRAMINE [Concomitant]
     Active Substance: DIPHENHYDRAMINE
  5. SENNA TABS [Concomitant]
     Active Substance: SENNOSIDES A AND B
  6. DOCUSATE [Concomitant]
     Active Substance: DOCUSATE
  7. RITUXAN [Suspect]
     Active Substance: RITUXIMAB
     Indication: POLYARTERITIS NODOSA
     Dosage: FREQUENCY: DAY 1, DAY 15
     Route: 042
     Dates: start: 201410
  8. DEXILANT [Concomitant]
     Active Substance: DEXLANSOPRAZOLE
  9. RISEDRONATE [Concomitant]
     Active Substance: RISEDRONATE SODIUM
  10. LOVENOX [Concomitant]
     Active Substance: ENOXAPARIN SODIUM
  11. ACETAMINOPHEN. [Concomitant]
     Active Substance: ACETAMINOPHEN
  12. METHADOSE [Concomitant]
     Active Substance: METHADONE HYDROCHLORIDE
  13. D-TABS [Concomitant]
     Active Substance: CHOLECALCIFEROL
  14. ACETYLSALICYLIC ACID [Concomitant]
     Active Substance: ASPIRIN
  15. TRILEPTAL [Concomitant]
     Active Substance: OXCARBAZEPINE
  16. DIMENHYDRINATE. [Concomitant]
     Active Substance: DIMENHYDRINATE
  17. CITALOPRAM [Concomitant]
     Active Substance: CITALOPRAM HYDROBROMIDE

REACTIONS (2)
  - Muscle necrosis [Not Recovered/Not Resolved]
  - Off label use [Unknown]
